FAERS Safety Report 5099270-9 (Version None)
Quarter: 2006Q3

REPORT INFORMATION
  Report Type: 
  Country: None (occurrence: None)
  Receive Date: 20060731
  Receipt Date: 20050921
  Transmission Date: 20061208
  Serious: Yes (Life-Threatening, Other)
  Sender: FDA-Public Use
  Company Number: US-2005-019617

PATIENT
  Age: 87 Year
  Sex: Female
  Weight: 72.6 kg

DRUGS (1)
  1. MAGNEVIST [Suspect]
     Indication: NUCLEAR MAGNETIC RESONANCE IMAGING
     Dosage: 10 ML, 1 DOSE, INTRAVENOUS
     Route: 042
     Dates: start: 20050919, end: 20050919

REACTIONS (6)
  - ANAPHYLACTIC REACTION [None]
  - BLOOD PRESSURE INCREASED [None]
  - CYANOSIS [None]
  - ERYTHEMA [None]
  - RESPIRATORY DISTRESS [None]
  - WHEEZING [None]
